FAERS Safety Report 18671271 (Version 8)
Quarter: 2021Q3

REPORT INFORMATION
  Report Type: Spontaneous
  Country: US (occurrence: US)
  Receive Date: 20201228
  Receipt Date: 20210927
  Transmission Date: 20211014
  Serious: Yes (Other)
  Sender: FDA-Public Use
  Company Number: US-GLAXOSMITHKLINE-US2020AMR252378

PATIENT
  Age: 64 Year
  Sex: Female

DRUGS (5)
  1. ZEJULA [Suspect]
     Active Substance: NIRAPARIB
     Indication: OVARIAN CANCER
     Dosage: 300 MG, QD
     Dates: start: 20201215
  2. ZEJULA [Suspect]
     Active Substance: NIRAPARIB
     Dosage: 200 MG, QD
  3. ZEJULA [Suspect]
     Active Substance: NIRAPARIB
     Dosage: 200 MG, QD
  4. ZEJULA [Suspect]
     Active Substance: NIRAPARIB
     Dosage: 200 MG, QD
     Route: 048
     Dates: end: 20210322
  5. ZEJULA [Suspect]
     Active Substance: NIRAPARIB
     Dosage: 200 MG, QD
     Route: 048
     Dates: start: 20210722

REACTIONS (33)
  - Back pain [Unknown]
  - Diarrhoea [Not Recovered/Not Resolved]
  - Muscle spasms [Not Recovered/Not Resolved]
  - Fungal skin infection [Unknown]
  - Decreased gait velocity [Unknown]
  - Drug monitoring procedure incorrectly performed [Unknown]
  - Dizziness [Unknown]
  - Peripheral coldness [Unknown]
  - Balance disorder [Unknown]
  - Alopecia [Unknown]
  - Arthralgia [Unknown]
  - Surgery [Unknown]
  - Taste disorder [Unknown]
  - Biliary colic [Unknown]
  - Incorrect dose administered [Unknown]
  - Dysgeusia [Unknown]
  - Memory impairment [Unknown]
  - Fat tissue increased [Unknown]
  - Foot deformity [Unknown]
  - Haemoglobin decreased [Unknown]
  - Ill-defined disorder [Unknown]
  - Fatigue [Not Recovered/Not Resolved]
  - Hot flush [Unknown]
  - Dyspnoea exertional [Unknown]
  - Full blood count decreased [Unknown]
  - Neuropathy peripheral [Unknown]
  - Dehydration [Unknown]
  - Constipation [Not Recovered/Not Resolved]
  - Cholelithiasis [Unknown]
  - Haematocrit decreased [Unknown]
  - White blood cell count decreased [Unknown]
  - Red blood cell count decreased [Unknown]
  - Product prescribing issue [Unknown]

NARRATIVE: CASE EVENT DATE: 20210301
